FAERS Safety Report 18710665 (Version 3)
Quarter: 2022Q2

REPORT INFORMATION
  Report Type: Spontaneous
  Country: GB (occurrence: GB)
  Receive Date: 20210107
  Receipt Date: 20220428
  Transmission Date: 20220720
  Serious: Yes (Hospitalization, Other)
  Sender: FDA-Public Use
  Company Number: None

PATIENT

DRUGS (5)
  1. IRINOTECAN [Suspect]
     Active Substance: IRINOTECAN
     Indication: Adenocarcinoma pancreas
     Dosage: UNK, TWO-WEEK CYCLES
     Route: 065
     Dates: start: 202003
  2. FLUOROURACIL [Suspect]
     Active Substance: FLUOROURACIL
     Indication: Adenocarcinoma pancreas
     Dosage: UNK, TWO-WEEK CYCLES
     Route: 065
     Dates: start: 202003
  3. LEUCOVORIN [Suspect]
     Active Substance: LEUCOVORIN
     Indication: Adenocarcinoma pancreas
     Dosage: UNK, TWO-WEEK CYCLES
     Route: 065
     Dates: start: 202003
  4. OXALIPLATIN [Suspect]
     Active Substance: OXALIPLATIN
     Indication: Adenocarcinoma pancreas
     Dosage: UNK, TWO-WEEK CYCLES
     Route: 065
     Dates: start: 202003
  5. LEVOTHYROXINE [Concomitant]
     Active Substance: LEVOTHYROXINE
     Indication: Hypothyroidism
     Dosage: UNK
     Route: 065

REACTIONS (9)
  - Aortic intramural haematoma [Recovered/Resolved]
  - Aortitis [Recovered/Resolved]
  - Vasculitis [Recovered/Resolved]
  - Neutropenic colitis [Unknown]
  - Rash maculo-papular [Recovered/Resolved]
  - Klebsiella infection [Recovered/Resolved]
  - Urinary tract infection [Recovered/Resolved]
  - Off label use [Unknown]
  - Acute kidney injury [Unknown]
